FAERS Safety Report 25376490 (Version 1)
Quarter: 2025Q2

REPORT INFORMATION
  Report Type: Spontaneous
  Country: FR (occurrence: FR)
  Receive Date: 20250530
  Receipt Date: 20250530
  Transmission Date: 20250716
  Serious: Yes (Death, Life-Threatening)
  Sender: UCB
  Company Number: None

PATIENT
  Age: 59 Year
  Sex: Female
  Weight: 67 kg

DRUGS (3)
  1. VIMPAT [Suspect]
     Active Substance: LACOSAMIDE
     Indication: Suicide attempt
     Route: 048
     Dates: start: 20250318, end: 20250318
  2. FYCOMPA [Suspect]
     Active Substance: PERAMPANEL
     Indication: Suicide attempt
     Route: 048
     Dates: start: 20250318, end: 20250318
  3. TEGRETOL [Suspect]
     Active Substance: CARBAMAZEPINE
     Indication: Suicide attempt
     Route: 048
     Dates: start: 20250318, end: 20250318

REACTIONS (2)
  - Cardio-respiratory arrest [Fatal]
  - Coma [Recovered/Resolved]

NARRATIVE: CASE EVENT DATE: 20250318
